FAERS Safety Report 12898256 (Version 1)
Quarter: 2016Q4

REPORT INFORMATION
  Report Type: Spontaneous
  Country: JP (occurrence: JP)
  Receive Date: 20161031
  Receipt Date: 20161031
  Transmission Date: 20170207
  Serious: Yes (Other)
  Sender: FDA-Public Use
  Company Number: JP-TEVA-707290ISR

PATIENT
  Age: 66 Year
  Sex: Female

DRUGS (11)
  1. E-FEN BUCCAL [Suspect]
     Active Substance: FENTANYL CITRATE
     Dosage: AS NEEDED (TEN DOSES WERE PRESCRIBED)
     Route: 002
     Dates: start: 20150507
  2. E-FEN BUCCAL [Suspect]
     Active Substance: FENTANYL CITRATE
     Dosage: 0 UG - 100 UG
     Route: 002
     Dates: start: 20150430, end: 20150514
  3. FENTOS [Concomitant]
     Active Substance: FENTANYL
     Dosage: 3 MILLIGRAM DAILY;
     Route: 062
     Dates: start: 20150625, end: 20150708
  4. FENTOS [Concomitant]
     Active Substance: FENTANYL
     Dosage: 4 MILLIGRAM DAILY;
     Route: 062
     Dates: start: 20150709
  5. E-FEN BUCCAL [Suspect]
     Active Substance: FENTANYL CITRATE
     Dosage: AS NEEDED (TEN DOSES WERE PRESCRIBED)
     Route: 002
     Dates: start: 20150430
  6. FENTOS [Concomitant]
     Active Substance: FENTANYL
     Dosage: 2 MILLIGRAM DAILY;
     Route: 062
     Dates: start: 20150422, end: 20150624
  7. E-FEN BUCCAL [Suspect]
     Active Substance: FENTANYL CITRATE
     Indication: BREAKTHROUGH PAIN
     Dosage: AS NEEDED (TEN DOSES WERE PRESCRIBED)
     Route: 002
     Dates: start: 20150417
  8. E-FEN BUCCAL [Suspect]
     Active Substance: FENTANYL CITRATE
     Dosage: AS NEEDED (TEN DOSES WERE PRESCRIBED)
     Route: 002
     Dates: start: 20150422
  9. E-FEN BUCCAL [Suspect]
     Active Substance: FENTANYL CITRATE
     Dosage: 100 UG
     Route: 002
     Dates: start: 20150521, end: 20150625
  10. FENTOS [Concomitant]
     Active Substance: FENTANYL
     Indication: CANCER PAIN
     Dosage: 1 MILLIGRAM DAILY;
     Route: 062
     Dates: start: 20150417, end: 20150421
  11. E-FEN BUCCAL [Suspect]
     Active Substance: FENTANYL CITRATE
     Dosage: 50 UG - 100 UG
     Route: 002
     Dates: start: 20150417, end: 20150430

REACTIONS (5)
  - Nausea [Not Recovered/Not Resolved]
  - Off label use [Unknown]
  - Constipation [Not Recovered/Not Resolved]
  - Ascites [Not Recovered/Not Resolved]
  - Hyperuricaemia [Not Recovered/Not Resolved]

NARRATIVE: CASE EVENT DATE: 20150423
